FAERS Safety Report 23938583 (Version 2)
Quarter: 2025Q4

REPORT INFORMATION
  Report Type: Report from Study
  Country: CA (occurrence: CA)
  Receive Date: 20240604
  Receipt Date: 20251029
  Transmission Date: 20260117
  Serious: Yes (Other)
  Sender: TAKEDA
  Company Number: CA-TAKEDA-2017TUS018739

PATIENT
  Age: 41 Year
  Sex: Male

DRUGS (5)
  1. VEDOLIZUMAB [Suspect]
     Active Substance: VEDOLIZUMAB
     Indication: Crohn^s disease
     Dosage: 300 MG, UNK
  2. VEDOLIZUMAB [Suspect]
     Active Substance: VEDOLIZUMAB
     Dosage: 300 MILLIGRAM
  3. VEDOLIZUMAB [Suspect]
     Active Substance: VEDOLIZUMAB
     Dosage: 300 MILLIGRAM
  4. CIPRALEX [Suspect]
     Active Substance: ESCITALOPRAM OXALATE
     Indication: Product used for unknown indication
     Dosage: UNK
  5. ZOLOFT [Concomitant]
     Active Substance: SERTRALINE HYDROCHLORIDE
     Dosage: UNK

REACTIONS (4)
  - Ankylosing spondylitis [Recovered/Resolved]
  - Amnesia [Not Recovered/Not Resolved]
  - Musculoskeletal discomfort [Not Recovered/Not Resolved]
  - Arthralgia [Recovering/Resolving]

NARRATIVE: CASE EVENT DATE: 20170712
